FAERS Safety Report 9665839 (Version 1)
Quarter: 2013Q4

REPORT INFORMATION
  Report Type: Spontaneous
  Country: US (occurrence: None)
  Receive Date: 20131031
  Receipt Date: 20131031
  Transmission Date: 20140711
  Serious: No
  Sender: FDA-Public Use
  Company Number: None

PATIENT
  Age: 67 Year
  Sex: Male
  Weight: 95.26 kg

DRUGS (10)
  1. RANEXA [Suspect]
     Indication: ANGINA PECTORIS
     Dosage: 1-500MGX2, 2, ORAL
     Route: 048
     Dates: start: 20130315
  2. RANEXA [Suspect]
     Indication: PAIN IN EXTREMITY
     Dosage: 1-500MGX2, 2, ORAL
     Route: 048
     Dates: start: 20130315
  3. RANEXA [Suspect]
     Indication: MUSCULOSKELETAL PAIN
     Dosage: 1-500MGX2, 2, ORAL
     Route: 048
     Dates: start: 20130315
  4. BP MED. [Concomitant]
  5. WATER PILL [Concomitant]
  6. LORAX [Concomitant]
  7. METOPORAL [Concomitant]
  8. RANEXA [Concomitant]
  9. FISH OIL [Concomitant]
  10. GLUGOSOMINE [Concomitant]

REACTIONS (4)
  - Dry mouth [None]
  - Fatigue [None]
  - Stress [None]
  - Angina pectoris [None]
